FAERS Safety Report 7386963-3 (Version None)
Quarter: 2011Q1

REPORT INFORMATION
  Report Type: 
  Country: None (occurrence: None)
  Receive Date: 20110331
  Receipt Date: 20110321
  Transmission Date: 20110831
  Serious: Yes (Hospitalization)
  Sender: FDA-Public Use
  Company Number: IT-BAXTER-2010BH021069

PATIENT
  Age: 70 Year
  Sex: Female

DRUGS (11)
  1. DOXORUBICIN GENERIC [Suspect]
     Indication: NON-HODGKIN'S LYMPHOMA
     Route: 042
     Dates: start: 20100726
  2. VINCRISTINE SULFATE [Suspect]
     Indication: NON-HODGKIN'S LYMPHOMA
     Route: 042
     Dates: start: 20100629, end: 20100709
  3. CYCLOPHOSPHAMIDE [Suspect]
     Route: 042
     Dates: start: 20100726
  4. MABTHERA [Suspect]
     Indication: NON-HODGKIN'S LYMPHOMA
     Route: 042
     Dates: start: 20100629, end: 20100709
  5. DOXORUBICIN GENERIC [Suspect]
     Route: 042
     Dates: start: 20100629, end: 20100709
  6. MABTHERA [Suspect]
     Route: 042
     Dates: start: 20100726
  7. VINCRISTINE SULFATE [Suspect]
     Route: 042
     Dates: start: 20100726
  8. CYCLOPHOSPHAMIDE [Suspect]
     Indication: NON-HODGKIN'S LYMPHOMA
     Route: 042
     Dates: start: 20100629, end: 20100709
  9. FLEBOCORTID [Concomitant]
     Indication: PRODUCT USED FOR UNKNOWN INDICATION
     Route: 065
     Dates: start: 20100629, end: 20100709
  10. TRIMETON [Concomitant]
     Indication: PRODUCT USED FOR UNKNOWN INDICATION
     Route: 065
     Dates: start: 20100629, end: 20100709
  11. ZOFRAN [Concomitant]
     Indication: PRODUCT USED FOR UNKNOWN INDICATION
     Route: 065
     Dates: start: 20100629, end: 20100709

REACTIONS (4)
  - FEBRILE NEUTROPENIA [None]
  - HYPERPYREXIA [None]
  - INTESTINAL OBSTRUCTION [None]
  - URINARY TRACT INFECTION [None]
